FAERS Safety Report 5098557-3 (Version None)
Quarter: 2006Q3

REPORT INFORMATION
  Report Type: 
  Country: None (occurrence: None)
  Receive Date: 20060906
  Receipt Date: 20060228
  Transmission Date: 20061208
  Serious: No
  Sender: FDA-Public Use
  Company Number: US-GLAXOSMITHKLINE-A0595961A

PATIENT
  Sex: Female

DRUGS (10)
  1. REQUIP [Suspect]
     Indication: RESTLESS LEGS SYNDROME
     Dosage: 1MG PER DAY
     Route: 048
  2. ARIMIDEX [Concomitant]
     Indication: BREAST CANCER
     Route: 065
     Dates: end: 20060226
  3. NORVASC [Concomitant]
  4. TOPROL-XL [Concomitant]
  5. LISINOPRIL AND HYDROCHLOROTHIAZIDE [Concomitant]
  6. LEXAPRO [Concomitant]
  7. CELEBREX [Concomitant]
     Dates: end: 20051201
  8. TYLENOL [Concomitant]
  9. GLUCOSAMINE CHONDROITIN [Concomitant]
  10. VOLTAREN [Concomitant]

REACTIONS (3)
  - INSOMNIA [None]
  - NIGHTMARE [None]
  - URTICARIA [None]
